FAERS Safety Report 9298391 (Version 1)
Quarter: 2013Q1

REPORT INFORMATION
  Report Type: Spontaneous
  Country: US (occurrence: None)
  Receive Date: 20121227
  Receipt Date: 20121227
  Transmission Date: 20140127
  Serious: No
  Sender: FDA-Public Use
  Company Number: PHEH2012US019216

PATIENT
  Age: 14 Year
  Sex: Female

DRUGS (11)
  1. AFINITOR [Suspect]
     Indication: TUBEROUS SCLEROSIS
     Route: 048
  2. AFINITOR [Suspect]
     Indication: BRAIN NEOPLASM BENIGN
     Route: 048
  3. ZINC (ZINC) [Concomitant]
  4. MULTIVITAMINS (ASCORBIC ACID, ERGOCALCIFEROL, FOLIC ACID, NICOTINAMIDE, PANTHENOL, RETINOL, RIBOFLAVIN, THIAMINE HYDROCHLORIDE) [Concomitant]
  5. TUMS (CALCIUM CARBONATE) [Concomitant]
  6. MIRALAX [Concomitant]
  7. LEXAPRO (ESCITALOPRAM OXALATE) [Concomitant]
  8. BUSPAR (BUSPIRONE HYDROCHLORIDE) [Concomitant]
  9. DIASTAT (DIAZEPAM) [Concomitant]
  10. VERSED (MIDAZOLAM HYDROCHLORIDE) [Concomitant]
  11. M.C.T. OIL (TRIGLYCERIDES) [Concomitant]

REACTIONS (4)
  - Tinea pedis [None]
  - Pain [None]
  - Menstrual disorder [None]
  - Renal disorder [None]
